FAERS Safety Report 10657559 (Version 2)
Quarter: 2015Q1

REPORT INFORMATION
  Report Type: Spontaneous
  Country: US (occurrence: US)
  Receive Date: 20141217
  Receipt Date: 20150205
  Transmission Date: 20150720
  Serious: No
  Sender: FDA-Public Use
  Company Number: US-PFIZER INC-2014343188

PATIENT
  Age: 45 Year
  Sex: Female
  Weight: 54 kg

DRUGS (1)
  1. ADVIL ALLERGY AND CONGESTION RELIEF [Suspect]
     Active Substance: CHLORPHENIRAMINE MALEATE\IBUPROFEN\PHENYLEPHRINE HYDROCHLORIDE
     Indication: MALAISE
     Dosage: ONE TABLET, EVERY 4 TO 6 HOURS
     Route: 048
     Dates: start: 20141208

REACTIONS (1)
  - Drug ineffective [Not Recovered/Not Resolved]

NARRATIVE: CASE EVENT DATE: 20141208
